FAERS Safety Report 14630796 (Version 1)
Quarter: 2018Q1

REPORT INFORMATION
  Report Type: Spontaneous
  Country: BA (occurrence: BA)
  Receive Date: 20180313
  Receipt Date: 20180313
  Transmission Date: 20180509
  Serious: Yes (Hospitalization)
  Sender: FDA-Public Use
  Company Number: BA-TEVA-2018-BA-866831

PATIENT
  Age: 42 Year
  Sex: Male
  Weight: 93 kg

DRUGS (1)
  1. CEFAZOLIN ACTAVIS [Suspect]
     Active Substance: CEFAZOLIN
     Dosage: 2 GRAM DAILY;
     Route: 042
     Dates: start: 20180214, end: 20180214

REACTIONS (1)
  - Urticaria [Unknown]

NARRATIVE: CASE EVENT DATE: 20180214
